FAERS Safety Report 6733008 (Version 3)
Quarter: 2013Q2

REPORT INFORMATION
  Report Type: Spontaneous
  Country: US (occurrence: US)
  Receive Date: 20080821
  Receipt Date: 20130617
  Transmission Date: 20140414
  Serious: Yes (Other)
  Sender: FDA-Public Use
  Company Number: US-RB-003472-08

PATIENT
  Age: 57 Year
  Sex: Female

DRUGS (6)
  1. SUBOXONE [Suspect]
     Route: 060
     Dates: start: 20080804, end: 2008
  2. SUBOXONE [Suspect]
     Indication: PAIN
     Dosage: TAPERED DOSES
     Route: 060
     Dates: start: 2008, end: 2008
  3. KLONOPIN [Concomitant]
     Indication: ANXIETY
     Route: 048
  4. TRAZODONE [Concomitant]
     Indication: DEPRESSION
     Route: 048
  5. IMITREX [Concomitant]
     Indication: MIGRAINE
     Route: 048
  6. ZOLOFT [Concomitant]
     Indication: POST-TRAUMATIC STRESS DISORDER
     Route: 048

REACTIONS (6)
  - Hallucination [Recovered/Resolved]
  - Suicidal ideation [Recovered/Resolved]
  - Overdose [Recovered/Resolved]
  - Nausea [Recovered/Resolved]
  - Vomiting [Recovered/Resolved]
  - Headache [Recovered/Resolved]
